FAERS Safety Report 11992017 (Version 1)
Quarter: 2016Q1

REPORT INFORMATION
  Report Type: Spontaneous
  Country: US (occurrence: US)
  Receive Date: 20160203
  Receipt Date: 20160203
  Transmission Date: 20160526
  Serious: No
  Sender: FDA-Public Use
  Company Number: US-JNJFOC-20151208035

PATIENT
  Sex: Male
  Weight: 108.86 kg

DRUGS (3)
  1. TYLENOL REGULAR STRENGTH [Suspect]
     Active Substance: ACETAMINOPHEN
     Indication: PAIN
     Route: 048
  2. TYLENOL REGULAR STRENGTH [Suspect]
     Active Substance: ACETAMINOPHEN
     Indication: PAIN
     Dosage: 3 CAPLETS, EVERY 3 TO 4 HOURS
     Route: 048
  3. CORTICOSTEROID NOS [Concomitant]
     Active Substance: CORTICOSTEROID NOS
     Indication: NASOPHARYNGITIS
     Route: 065

REACTIONS (5)
  - Extra dose administered [Unknown]
  - Intentional product use issue [Unknown]
  - Off label use [Unknown]
  - Drug effect decreased [Unknown]
  - Self-medication [Unknown]
